FAERS Safety Report 5076090-2 (Version None)
Quarter: 2006Q3

REPORT INFORMATION
  Report Type: 
  Country: None (occurrence: None)
  Receive Date: 20060809
  Receipt Date: 20051221
  Transmission Date: 20061208
  Serious: No
  Sender: FDA-Public Use
  Company Number: US-AMGEN-KDL162597

PATIENT
  Sex: Male
  Weight: 63.6 kg

DRUGS (7)
  1. PROCRIT [Suspect]
     Indication: ANAEMIA
     Route: 058
     Dates: start: 20050621
  2. NEULASTA [Concomitant]
     Route: 058
     Dates: start: 20050101
  3. PREDNISONE [Concomitant]
  4. PLAQUENIL [Concomitant]
     Route: 048
  5. ACTONEL [Concomitant]
     Route: 048
  6. ALLOPURINOL [Concomitant]
     Route: 048
  7. FOLIC ACID [Concomitant]

REACTIONS (4)
  - ARTHRALGIA [None]
  - MUSCULOSKELETAL PAIN [None]
  - NEUTROPHIL COUNT DECREASED [None]
  - PNEUMONIA [None]
